FAERS Safety Report 4498036-8 (Version None)
Quarter: 2004Q1

REPORT INFORMATION
  Report Type: 
  Country: None (occurrence: None)
  Receive Date: 20040309
  Receipt Date: 20040309
  Transmission Date: 20041129
  Serious: Yes (Other)
  Sender: FDA-Public Use
  Company Number: None

PATIENT
  Age: 51 Year
  Sex: Female
  Weight: 158.759 kg

DRUGS (2)
  1. LEVOFLOXACIN [Suspect]
     Indication: BRONCHITIS ACUTE
     Dosage: 1 TABLET 3 DAYS ORAL
     Route: 048
     Dates: start: 20041104, end: 20041106
  2. TEQUIN [Concomitant]

REACTIONS (10)
  - ARTHRALGIA [None]
  - DISTURBANCE IN ATTENTION [None]
  - DIZZINESS [None]
  - FATIGUE [None]
  - HERPES SIMPLEX [None]
  - JOINT SWELLING [None]
  - MOBILITY DECREASED [None]
  - OEDEMA MOUTH [None]
  - PAIN [None]
  - SWELLING FACE [None]
